FAERS Safety Report 9399882 (Version 1)
Quarter: 2013Q3

REPORT INFORMATION
  Report Type: Spontaneous
  Country: GB (occurrence: GB)
  Receive Date: 20130715
  Receipt Date: 20130715
  Transmission Date: 20140515
  Serious: Yes (Hospitalization, Other)
  Sender: FDA-Public Use
  Company Number: GB-JNJFOC-20130703517

PATIENT
  Age: 2 Year
  Sex: Female

DRUGS (89)
  1. DOXORUBICIN [Suspect]
     Indication: RHABDOMYOSARCOMA
     Route: 042
     Dates: start: 201209
  2. DOXORUBICIN [Suspect]
     Indication: RHABDOMYOSARCOMA
     Route: 042
     Dates: start: 20110809
  3. DOXORUBICIN [Suspect]
     Indication: RHABDOMYOSARCOMA
     Dosage: ON DAYS 1, 2 OF CYCLE
     Route: 042
     Dates: start: 20110712
  4. DOXORUBICIN [Suspect]
     Indication: SARCOMA
     Route: 042
     Dates: start: 20110809
  5. DOXORUBICIN [Suspect]
     Indication: SARCOMA
     Dosage: ON DAYS 1, 2 OF CYCLE
     Route: 042
     Dates: start: 20110712
  6. DOXORUBICIN [Suspect]
     Indication: SARCOMA
     Route: 042
     Dates: start: 201209
  7. BEVACIZUMAB [Suspect]
     Indication: SARCOMA
     Route: 042
     Dates: start: 201209
  8. BEVACIZUMAB [Suspect]
     Indication: SARCOMA
     Dosage: ON DAY 1 OF CYCLE
     Route: 042
     Dates: start: 20110712
  9. BEVACIZUMAB [Suspect]
     Indication: SARCOMA
     Route: 042
     Dates: start: 20110808
  10. BEVACIZUMAB [Suspect]
     Indication: SARCOMA
     Route: 042
     Dates: start: 20120712
  11. BEVACIZUMAB [Suspect]
     Indication: SARCOMA
     Route: 042
     Dates: start: 20120516
  12. BEVACIZUMAB [Suspect]
     Indication: RHABDOMYOSARCOMA
     Dosage: ON DAY 1 OF CYCLE
     Route: 042
     Dates: start: 20110712
  13. BEVACIZUMAB [Suspect]
     Indication: RHABDOMYOSARCOMA
     Route: 042
     Dates: start: 20110808
  14. BEVACIZUMAB [Suspect]
     Indication: RHABDOMYOSARCOMA
     Route: 042
     Dates: start: 20120712
  15. BEVACIZUMAB [Suspect]
     Indication: RHABDOMYOSARCOMA
     Route: 042
     Dates: start: 20120516
  16. BEVACIZUMAB [Suspect]
     Indication: RHABDOMYOSARCOMA
     Route: 042
     Dates: start: 201209
  17. CYCLOPHOSPHAMIDE [Suspect]
     Indication: SARCOMA
     Route: 048
     Dates: start: 201209
  18. CYCLOPHOSPHAMIDE [Suspect]
     Indication: SARCOMA
     Dosage: (25 MG/M2)
     Route: 048
     Dates: start: 20120301
  19. CYCLOPHOSPHAMIDE [Suspect]
     Indication: SARCOMA
     Route: 048
     Dates: start: 20120907
  20. CYCLOPHOSPHAMIDE [Suspect]
     Indication: SARCOMA
     Route: 048
     Dates: start: 20120623
  21. CYCLOPHOSPHAMIDE [Suspect]
     Indication: SARCOMA
     Route: 048
     Dates: start: 20120511
  22. CYCLOPHOSPHAMIDE [Suspect]
     Indication: RHABDOMYOSARCOMA
     Dosage: (25 MG/M2)
     Route: 048
     Dates: start: 20120301
  23. CYCLOPHOSPHAMIDE [Suspect]
     Indication: RHABDOMYOSARCOMA
     Route: 048
     Dates: start: 20120907
  24. CYCLOPHOSPHAMIDE [Suspect]
     Indication: RHABDOMYOSARCOMA
     Route: 048
     Dates: start: 20120623
  25. CYCLOPHOSPHAMIDE [Suspect]
     Indication: RHABDOMYOSARCOMA
     Route: 048
     Dates: start: 20120511
  26. CYCLOPHOSPHAMIDE [Suspect]
     Indication: RHABDOMYOSARCOMA
     Route: 048
     Dates: start: 201209
  27. IFOSPHAMIDE [Suspect]
     Indication: SARCOMA
     Route: 042
     Dates: start: 201209
  28. IFOSPHAMIDE [Suspect]
     Indication: SARCOMA
     Dosage: 1077 G ON DAYS 1, 2 OF CYCLE
     Route: 042
     Dates: start: 20110712
  29. IFOSPHAMIDE [Suspect]
     Indication: SARCOMA
     Route: 042
     Dates: start: 20110809
  30. IFOSPHAMIDE [Suspect]
     Indication: SARCOMA
     Route: 042
     Dates: start: 20110713
  31. IFOSPHAMIDE [Suspect]
     Indication: RHABDOMYOSARCOMA
     Dosage: 1077 G ON DAYS 1, 2 OF CYCLE
     Route: 042
     Dates: start: 20110712
  32. IFOSPHAMIDE [Suspect]
     Indication: RHABDOMYOSARCOMA
     Route: 042
     Dates: start: 20110809
  33. IFOSPHAMIDE [Suspect]
     Indication: RHABDOMYOSARCOMA
     Route: 042
     Dates: start: 20110713
  34. IFOSPHAMIDE [Suspect]
     Indication: RHABDOMYOSARCOMA
     Route: 042
     Dates: start: 201209
  35. LYOVAC COSMEGEN [Suspect]
     Indication: RHABDOMYOSARCOMA
     Route: 065
     Dates: start: 201209
  36. LYOVAC COSMEGEN [Suspect]
     Indication: RHABDOMYOSARCOMA
     Route: 065
     Dates: start: 20110808
  37. LYOVAC COSMEGEN [Suspect]
     Indication: RHABDOMYOSARCOMA
     Route: 065
     Dates: start: 20110712
  38. LYOVAC COSMEGEN [Suspect]
     Indication: SARCOMA
     Route: 065
     Dates: start: 20110808
  39. LYOVAC COSMEGEN [Suspect]
     Indication: SARCOMA
     Route: 065
     Dates: start: 20110712
  40. LYOVAC COSMEGEN [Suspect]
     Indication: SARCOMA
     Route: 065
     Dates: start: 201209
  41. MESNA [Suspect]
     Indication: SARCOMA
     Route: 042
     Dates: start: 201209
  42. MESNA [Suspect]
     Indication: SARCOMA
     Dosage: 1.90 G ON DAYS 1, 2 OF CYCLE
     Route: 042
     Dates: start: 20110712
  43. MESNA [Suspect]
     Indication: SARCOMA
     Route: 042
     Dates: start: 20110921
  44. MESNA [Suspect]
     Indication: SARCOMA
     Route: 042
     Dates: start: 20110809
  45. MESNA [Suspect]
     Indication: RHABDOMYOSARCOMA
     Dosage: 1.90 G ON DAYS 1, 2 OF CYCLE
     Route: 042
     Dates: start: 20110712
  46. MESNA [Suspect]
     Indication: RHABDOMYOSARCOMA
     Route: 042
     Dates: start: 20110921
  47. MESNA [Suspect]
     Indication: RHABDOMYOSARCOMA
     Route: 042
     Dates: start: 20110809
  48. MESNA [Suspect]
     Indication: RHABDOMYOSARCOMA
     Route: 042
     Dates: start: 201209
  49. VINCRISTINE [Suspect]
     Indication: SARCOMA
     Route: 042
     Dates: start: 201209
  50. VINCRISTINE [Suspect]
     Indication: SARCOMA
     Dosage: (1.5 MG/M2) ON DAY 1, 8 AND 15 OF CYCLE
     Route: 042
     Dates: start: 20110712
  51. VINCRISTINE [Suspect]
     Indication: SARCOMA
     Route: 042
     Dates: start: 20110809
  52. VINCRISTINE [Suspect]
     Indication: SARCOMA
     Route: 042
     Dates: start: 20120301
  53. VINCRISTINE [Suspect]
     Indication: SARCOMA
     Route: 042
     Dates: start: 20110815
  54. VINCRISTINE [Suspect]
     Indication: RHABDOMYOSARCOMA
     Dosage: (1.5 MG/M2) ON DAY 1, 8 AND 15 OF CYCLE
     Route: 042
     Dates: start: 20110712
  55. VINCRISTINE [Suspect]
     Indication: RHABDOMYOSARCOMA
     Route: 042
     Dates: start: 20110809
  56. VINCRISTINE [Suspect]
     Indication: RHABDOMYOSARCOMA
     Route: 042
     Dates: start: 20120301
  57. VINCRISTINE [Suspect]
     Indication: RHABDOMYOSARCOMA
     Route: 042
     Dates: start: 20110815
  58. VINCRISTINE [Suspect]
     Indication: RHABDOMYOSARCOMA
     Route: 042
     Dates: start: 201209
  59. VINORELBINE [Suspect]
     Indication: SARCOMA
     Route: 065
     Dates: start: 201209
  60. VINORELBINE [Suspect]
     Indication: SARCOMA
     Route: 065
     Dates: start: 20120301
  61. VINORELBINE [Suspect]
     Indication: RHABDOMYOSARCOMA
     Route: 065
     Dates: start: 201209
  62. VINORELBINE [Suspect]
     Indication: RHABDOMYOSARCOMA
     Route: 065
     Dates: start: 20120301
  63. CEFIXIME [Concomitant]
     Route: 065
     Dates: start: 20120417
  64. CO-TRIMOXAZOLE [Concomitant]
     Route: 048
     Dates: start: 20110716
  65. DIHYDROCODEINE [Concomitant]
     Route: 048
     Dates: start: 20110928
  66. DOCUSATE [Concomitant]
     Route: 048
     Dates: start: 20111230
  67. DOCUSATE [Concomitant]
     Dosage: 3/1DAYS
     Route: 048
     Dates: start: 20111125
  68. DOCUSATE [Concomitant]
     Dosage: 3/1DAYS
     Route: 048
     Dates: start: 20110714
  69. EMOLLIENTS [Concomitant]
     Route: 065
     Dates: start: 20111012
  70. FLUCONAZOLE [Concomitant]
     Route: 065
  71. G-CSF [Concomitant]
     Dosage: 1/1DAYS
     Route: 065
     Dates: start: 20110924
  72. G-CSF [Concomitant]
     Dosage: 1/1DAYS
     Route: 065
     Dates: start: 20110903
  73. GENTAMICIN [Concomitant]
     Dosage: 1/1DAYS
     Route: 065
     Dates: start: 20110817, end: 20110824
  74. IRINOTECAN [Concomitant]
     Route: 065
     Dates: start: 20120915
  75. LEVOMEPROMAZINE [Concomitant]
     Route: 065
     Dates: start: 20110713
  76. LEVOMEPROMAZINE [Concomitant]
     Dosage: 2/1DAYS
     Route: 065
     Dates: start: 20110725, end: 20110727
  77. MORPHINE [Concomitant]
     Route: 048
     Dates: start: 20110817
  78. MOVICOL [Concomitant]
     Route: 065
     Dates: start: 20120326
  79. MOVICOL [Concomitant]
     Route: 065
     Dates: start: 20110901, end: 20110907
  80. MOVICOL [Concomitant]
     Route: 065
     Dates: start: 20110820
  81. ONDANSETRON [Concomitant]
     Route: 048
     Dates: start: 20110817
  82. ONDANSETRON [Concomitant]
     Route: 048
     Dates: start: 20111125, end: 20111129
  83. ONDANSETRON [Concomitant]
     Route: 048
     Dates: start: 20110901, end: 20110907
  84. ONDANSETRON [Concomitant]
     Route: 048
     Dates: start: 20110712
  85. ONDANSETRON [Concomitant]
     Route: 048
     Dates: start: 20110915
  86. ONDANSETRON [Concomitant]
     Route: 048
     Dates: start: 20110927
  87. PARACETAMOL [Concomitant]
     Dosage: 1 IN ONE DAY AS NECESSARY
     Route: 048
     Dates: start: 20110817
  88. PIPERACILLIN AND TAZOBACTAM [Concomitant]
     Route: 065
     Dates: start: 20110817, end: 20110824
  89. TEMOZOLOMIDE [Concomitant]
     Route: 065
     Dates: start: 20120915

REACTIONS (6)
  - Febrile neutropenia [Recovered/Resolved]
  - Candida test positive [Recovered/Resolved]
  - Epistaxis [Recovered/Resolved]
  - Mucosal inflammation [Recovered/Resolved]
  - Disease progression [Unknown]
  - Off label use [Unknown]
